FAERS Safety Report 5661760-5 (Version None)
Quarter: 2008Q1

REPORT INFORMATION
  Report Type: 
  Country: None (occurrence: None)
  Receive Date: 20080306
  Receipt Date: 20080221
  Transmission Date: 20080703
  Serious: Yes (Death)
  Sender: FDA-Public Use
  Company Number: 8029541

PATIENT
  Age: 24 Month
  Sex: Female

DRUGS (3)
  1. KEPPRA [Suspect]
     Indication: CONVULSION
     Dates: start: 20050801
  2. LUMINAL [Concomitant]
  3. VALPROIC [Concomitant]

REACTIONS (9)
  - BLOOD PH DECREASED [None]
  - BLOOD SODIUM DECREASED [None]
  - BRONCHIAL OBSTRUCTION [None]
  - GENERAL PHYSICAL HEALTH DETERIORATION [None]
  - HAEMATOCRIT DECREASED [None]
  - HAEMOGLOBIN DECREASED [None]
  - HYPOTONIA [None]
  - PNEUMONIA [None]
  - RESPIRATORY FAILURE [None]
